FAERS Safety Report 7798609-0 (Version None)
Quarter: 2011Q4

REPORT INFORMATION
  Report Type: 
  Country: None (occurrence: None)
  Receive Date: 20111005
  Receipt Date: 20110926
  Transmission Date: 20120403
  Serious: Yes (Other)
  Sender: FDA-Public Use
  Company Number: US-ASTRAZENECA-2011SE32345

PATIENT
  Age: 81 Year
  Sex: Female

DRUGS (1)
  1. NEXIUM [Suspect]
     Route: 048

REACTIONS (10)
  - FALL [None]
  - CLAVICLE FRACTURE [None]
  - OSTEOPOROSIS [None]
  - HIATUS HERNIA [None]
  - PAIN [None]
  - ANIMAL BITE [None]
  - VOMITING [None]
  - NAUSEA [None]
  - UPPER LIMB FRACTURE [None]
  - WRIST FRACTURE [None]
